FAERS Safety Report 4509348-3 (Version None)
Quarter: 2004Q4

REPORT INFORMATION
  Report Type: 
  Country: None (occurrence: None)
  Receive Date: 20041123
  Receipt Date: 20041118
  Transmission Date: 20050328
  Serious: Yes (Disabling)
  Sender: FDA-Public Use
  Company Number: US-MERCK-0411USA03308

PATIENT
  Age: 66 Year
  Sex: Male

DRUGS (6)
  1. VIOXX [Suspect]
     Indication: ARTHRITIS
     Route: 048
  2. LOPRESSOR [Concomitant]
     Route: 065
  3. CILOSTAZOL [Concomitant]
     Route: 065
  4. LIPITOR [Concomitant]
     Route: 065
  5. MOBIC [Concomitant]
     Route: 065
  6. VERAPAMIL [Concomitant]
     Route: 065

REACTIONS (1)
  - PERIPHERAL OCCLUSIVE DISEASE [None]
